FAERS Safety Report 9871168 (Version 1)
Quarter: 2014Q1

REPORT INFORMATION
  Report Type: Spontaneous
  Country: US (occurrence: US)
  Receive Date: 20140205
  Receipt Date: 20140205
  Transmission Date: 20141002
  Serious: Yes (Hospitalization, Other)
  Sender: FDA-Public Use
  Company Number: US-PFIZER INC-2014030985

PATIENT
  Sex: Female

DRUGS (4)
  1. ZOLOFT [Suspect]
     Dosage: UNK
  2. ATIVAN [Suspect]
     Dosage: 1 MG, UNK
  3. COUMADIN [Suspect]
     Dosage: UNK
  4. SOTALOL [Suspect]
     Dosage: UNK

REACTIONS (3)
  - Atrial fibrillation [Unknown]
  - Cardiac discomfort [Unknown]
  - Anxiety [Unknown]
